FAERS Safety Report 17008167 (Version 3)
Quarter: 2019Q4

REPORT INFORMATION
  Report Type: Spontaneous
  Country: JP (occurrence: JP)
  Receive Date: 20191108
  Receipt Date: 20191129
  Transmission Date: 20200122
  Serious: Yes (Other)
  Sender: FDA-Public Use
  Company Number: JP-VIIV HEALTHCARE LIMITED-JP2019JPN201965

PATIENT
  Age: 30 Year
  Sex: Male

DRUGS (4)
  1. TIVICAY [Suspect]
     Active Substance: DOLUTEGRAVIR SODIUM
     Indication: HIV INFECTION
     Dosage: 50 MG, QD
     Route: 048
     Dates: start: 20170327
  2. REBAMIPIDE OD [Concomitant]
     Active Substance: REBAMIPIDE
     Dosage: 100 MG, BID
  3. LOXOPROFEN SODIUM HYDRATE TABLET [Concomitant]
     Indication: PYREXIA
     Dosage: 60 MG, BID
  4. DESCOVY [Concomitant]
     Active Substance: EMTRICITABINE\TENOFOVIR ALAFENAMIDE FUMARATE
     Indication: HIV INFECTION
     Dosage: UNK

REACTIONS (4)
  - Bone tuberculosis [Unknown]
  - Tuberculosis [Unknown]
  - Subcutaneous abscess [Unknown]
  - Cutaneous tuberculosis [Unknown]
